FAERS Safety Report 7792736-X (Version None)
Quarter: 2011Q4

REPORT INFORMATION
  Report Type: 
  Country: None (occurrence: None)
  Receive Date: 20111003
  Receipt Date: 20110921
  Transmission Date: 20120403
  Serious: No
  Sender: FDA-Public Use
  Company Number: US-B.I. PHARMACEUTICALS,INC./RIDGEFIELD-2011-BP-22748BP

PATIENT
  Age: 45 Year
  Sex: Female

DRUGS (1)
  1. VIRAMUNE [Suspect]
     Route: 048
     Dates: start: 20110801

REACTIONS (2)
  - VIRAL LOAD INCREASED [None]
  - MEDICATION RESIDUE [None]
